FAERS Safety Report 24358949 (Version 1)
Quarter: 2024Q3

REPORT INFORMATION
  Report Type: Spontaneous
  Country: US (occurrence: US)
  Receive Date: 20240924
  Receipt Date: 20240924
  Transmission Date: 20241017
  Serious: No
  Sender: SUNOVION
  Company Number: US-SMPA-2024SPA002262AA

PATIENT

DRUGS (1)
  1. ORGOVYX [Suspect]
     Active Substance: RELUGOLIX
     Dosage: UNKNOWN
     Route: 048

REACTIONS (7)
  - Micturition urgency [Unknown]
  - Enuresis [Unknown]
  - Dizziness [Unknown]
  - Nausea [Unknown]
  - Hot flush [Unknown]
  - Fatigue [Unknown]
  - Insomnia [Unknown]
